FAERS Safety Report 11988264 (Version 2)
Quarter: 2016Q1

REPORT INFORMATION
  Report Type: Spontaneous
  Country: US (occurrence: US)
  Receive Date: 20160202
  Receipt Date: 20160229
  Transmission Date: 20160526
  Serious: Yes (Hospitalization)
  Sender: FDA-Public Use
  Company Number: US-PFIZER INC-2016050033

PATIENT
  Age: 67 Year
  Sex: Male

DRUGS (1)
  1. SUTENT [Suspect]
     Active Substance: SUNITINIB MALATE
     Indication: RENAL CELL CARCINOMA
     Dosage: 50 MG, CYCLIC 28 DAYS ON/14 DAYS OFF
     Dates: start: 20160114, end: 20160207

REACTIONS (18)
  - Insomnia [Unknown]
  - Diarrhoea [Unknown]
  - Glossodynia [Not Recovered/Not Resolved]
  - Pyrexia [Unknown]
  - Dysgeusia [Unknown]
  - Arthralgia [Unknown]
  - Asthenia [Recovered/Resolved]
  - Feeling hot [Unknown]
  - Rash [Unknown]
  - Chills [Recovered/Resolved]
  - Dyspnoea [Unknown]
  - Decreased appetite [Not Recovered/Not Resolved]
  - Night sweats [Recovered/Resolved]
  - Malaise [Unknown]
  - Fatigue [Recovered/Resolved]
  - Eating disorder [Not Recovered/Not Resolved]
  - Dysphagia [Unknown]
  - Stomatitis [Unknown]
